FAERS Safety Report 5319166-4 (Version None)
Quarter: 2007Q2

REPORT INFORMATION
  Report Type: 
  Country: None (occurrence: None)
  Receive Date: 20070508
  Receipt Date: 20070501
  Transmission Date: 20071010
  Serious: Yes (Death)
  Sender: FDA-Public Use
  Company Number: US-JNJFOC-20060902669

PATIENT
  Age: 61 Year
  Sex: Male

DRUGS (12)
  1. ASPIRIN [Suspect]
     Indication: SUICIDE ATTEMPT
     Route: 048
  2. ATENOLOL [Suspect]
     Indication: SUICIDE ATTEMPT
     Route: 048
  3. CARBAMAZEPINE [Suspect]
     Indication: SUICIDE ATTEMPT
     Route: 048
  4. PHENYTOIN [Suspect]
     Indication: SUICIDE ATTEMPT
     Route: 048
  5. KEPPRA [Suspect]
     Indication: SUICIDE ATTEMPT
     Route: 048
  6. ZOLOFT [Suspect]
     Indication: SUICIDE ATTEMPT
     Route: 048
  7. LISINOPRIL [Suspect]
     Indication: SUICIDE ATTEMPT
     Route: 048
  8. LIPITOR [Suspect]
     Indication: SUICIDE ATTEMPT
     Route: 048
  9. PLAVIX [Suspect]
     Indication: SUICIDE ATTEMPT
     Route: 048
  10. ASACOL [Suspect]
     Indication: SUICIDE ATTEMPT
     Route: 048
  11. NAPROXEN [Suspect]
     Indication: SUICIDE ATTEMPT
     Route: 048
  12. VIAGRA [Suspect]
     Indication: SUICIDE ATTEMPT
     Route: 048

REACTIONS (5)
  - ATRIOVENTRICULAR BLOCK FIRST DEGREE [None]
  - BRADYCARDIA [None]
  - COMPLETED SUICIDE [None]
  - HYPOTENSION [None]
  - MULTIPLE DRUG OVERDOSE INTENTIONAL [None]
